FAERS Safety Report 8967772 (Version 1)
Quarter: 2012Q4

REPORT INFORMATION
  Report Type: Spontaneous
  Country: MX (occurrence: None)
  Receive Date: 20121207
  Receipt Date: 20121207
  Transmission Date: 20130627
  Serious: Yes (Death, Hospitalization, Other)
  Sender: FDA-Public Use
  Company Number: ENTC2012-0538

PATIENT
  Sex: Male

DRUGS (3)
  1. STALEVO (LEVODOPA, CARBIDOPA, ENTACAPONE) [Suspect]
     Indication: PARKINSON^S DISEASE
     Dosage: 50/12.5/200 mg (1 Dosage form,1 in 1 d) Oral
     Dates: start: 20120403
  2. SILNUX [Concomitant]
  3. TAFIL [Concomitant]

REACTIONS (3)
  - Respiratory arrest [None]
  - Pneumonia [None]
  - Increased upper airway secretion [None]
